FAERS Safety Report 10058439 (Version 3)
Quarter: 2014Q3

REPORT INFORMATION
  Report Type: Report from Study
  Country: NL (occurrence: NL)
  Receive Date: 20140404
  Receipt Date: 20140908
  Transmission Date: 20150326
  Serious: Yes (Hospitalization)
  Sender: FDA-Public Use
  Company Number: NL-B.I. PHARMACEUTICALS,INC./RIDGEFIELD-2013-BI-34453NL

PATIENT
  Age: 68 Year
  Sex: Male
  Weight: 82 kg

DRUGS (2)
  1. PRADAXA [Suspect]
     Active Substance: DABIGATRAN ETEXILATE MESYLATE
     Indication: ATRIAL FIBRILLATION
     Dosage: 300 MG
     Route: 048
     Dates: start: 20130131
  2. AMOXICILINE [Concomitant]
     Indication: INFECTION
     Dosage: 1500 MG
     Route: 048
     Dates: start: 20130608, end: 20130616

REACTIONS (2)
  - Pneumonia [Recovered/Resolved]
  - Haemoptysis [Recovered/Resolved]

NARRATIVE: CASE EVENT DATE: 20130608
